FAERS Safety Report 6332309-9 (Version None)
Quarter: 2009Q3

REPORT INFORMATION
  Report Type: 
  Country: None (occurrence: None)
  Receive Date: 20090828
  Receipt Date: 20070613
  Transmission Date: 20100115
  Serious: Yes (Other)
  Sender: FDA-Public Use
  Company Number: US-ASTRAZENECA-2006UW25640

PATIENT
  Age: 39 Year
  Sex: Female
  Weight: 54.9 kg

DRUGS (16)
  1. SEROQUEL [Suspect]
     Indication: BIPOLAR DISORDER
     Dosage: 50 -200 MG
     Route: 048
     Dates: start: 19980101, end: 20050701
  2. SEROQUEL [Suspect]
     Indication: SCHIZOPHRENIA
     Dosage: 50 -200 MG
     Route: 048
     Dates: start: 19980101, end: 20050701
  3. SEROQUEL [Suspect]
     Indication: MANIA
     Dosage: 50 -200 MG
     Route: 048
     Dates: start: 19980101, end: 20050701
  4. SEROQUEL [Suspect]
     Indication: PSYCHOTIC DISORDER
     Dosage: 50 -200 MG
     Route: 048
     Dates: start: 19980101, end: 20050701
  5. SEROQUEL [Suspect]
     Dosage: 25-200 MG
     Route: 048
     Dates: start: 20000729
  6. SEROQUEL [Suspect]
     Dosage: 25-200 MG
     Route: 048
     Dates: start: 20000729
  7. SEROQUEL [Suspect]
     Dosage: 25-200 MG
     Route: 048
     Dates: start: 20000729
  8. SEROQUEL [Suspect]
     Dosage: 25-200 MG
     Route: 048
     Dates: start: 20000729
  9. GEODON [Concomitant]
     Dates: start: 20010601
  10. HALDOL [Concomitant]
     Dates: start: 20010801
  11. RISPERDAL [Concomitant]
     Dosage: 2-5 MG
     Dates: start: 19970101
  12. RISPERDAL [Concomitant]
  13. DEPAKOTE [Concomitant]
     Dates: start: 19970101, end: 19990101
  14. TOPAMAX [Concomitant]
     Dates: start: 19970101
  15. CLONAZEPAM [Concomitant]
     Dates: start: 19970101
  16. ZYPREXA [Concomitant]
     Dates: start: 19970101, end: 19990101

REACTIONS (5)
  - DIABETES MELLITUS [None]
  - GESTATIONAL DIABETES [None]
  - GLUCOSE TOLERANCE IMPAIRED [None]
  - TYPE 1 DIABETES MELLITUS [None]
  - TYPE 2 DIABETES MELLITUS [None]
